FAERS Safety Report 18165126 (Version 1)
Quarter: 2020Q3

REPORT INFORMATION
  Report Type: Spontaneous
  Country: CO (occurrence: CO)
  Receive Date: 20200819
  Receipt Date: 20200819
  Transmission Date: 20201103
  Serious: Yes (Life-Threatening, Hospitalization, Other)
  Sender: FDA-Public Use
  Company Number: CO-ACCORD-196492

PATIENT
  Age: 17 Year
  Sex: Female

DRUGS (7)
  1. LOSARTAN. [Suspect]
     Active Substance: LOSARTAN
     Route: 048
  2. FLUOXETINE [Suspect]
     Active Substance: FLUOXETINE HYDROCHLORIDE
     Route: 048
  3. PRAZOSIN. [Suspect]
     Active Substance: PRAZOSIN
     Route: 048
  4. AMLODIPINE [Suspect]
     Active Substance: AMLODIPINE BESYLATE
     Route: 048
  5. VERAPAMIL [Suspect]
     Active Substance: VERAPAMIL HYDROCHLORIDE
     Route: 048
  6. NITROFURANTOIN/NITROFURANTOIN SODIUM [Suspect]
     Active Substance: NITROFURANTOIN
     Route: 048
  7. METOPROLOL. [Suspect]
     Active Substance: METOPROLOL
     Route: 048

REACTIONS (8)
  - Hypotension [Recovered/Resolved]
  - Atrioventricular block first degree [Recovered/Resolved]
  - Shock [Recovered/Resolved]
  - Intentional overdose [Unknown]
  - Suicide attempt [Unknown]
  - Cardiogenic shock [Recovered/Resolved]
  - Bundle branch block right [Recovered/Resolved]
  - Sinus bradycardia [Recovered/Resolved]
